FAERS Safety Report 19980116 (Version 1)
Quarter: 2021Q4

REPORT INFORMATION
  Report Type: Report from Study
  Country: CO (occurrence: CO)
  Receive Date: 20211021
  Receipt Date: 20211021
  Transmission Date: 20220303
  Serious: Yes (Other)
  Sender: FDA-Public Use
  Company Number: CO-JNJFOC-20210726791

PATIENT
  Age: 60 Year
  Sex: Female
  Weight: 65 kg

DRUGS (12)
  1. SIMPONI [Suspect]
     Active Substance: GOLIMUMAB
     Indication: Rheumatoid arthritis
     Route: 058
     Dates: start: 20180427
  2. SIMPONI [Suspect]
     Active Substance: GOLIMUMAB
     Route: 058
     Dates: start: 20200604
  3. COVID-19 VACCINE NOS [Suspect]
     Active Substance: COVID-19 VACCINE NOS
     Indication: COVID-19 prophylaxis
     Route: 065
     Dates: start: 20210519, end: 20210609
  4. METHOTREXATE [Concomitant]
     Active Substance: METHOTREXATE
  5. LEFLUNOMIDE [Concomitant]
     Active Substance: LEFLUNOMIDE
  6. LEVOTHYROXINE SODIUM [Concomitant]
     Active Substance: LEVOTHYROXINE SODIUM
  7. LOSARTAN [Concomitant]
     Active Substance: LOSARTAN
  8. AMPICILLIN [Concomitant]
     Active Substance: AMPICILLIN
  9. AMOXICILLIN [Concomitant]
     Active Substance: AMOXICILLIN
  10. BETAMETHASONE [Concomitant]
     Active Substance: BETAMETHASONE
  11. CALCIUM [Concomitant]
     Active Substance: CALCIUM
  12. HYDROCHLOROTHIAZIDE [Concomitant]
     Active Substance: HYDROCHLOROTHIAZIDE

REACTIONS (4)
  - Toxic skin eruption [Not Recovered/Not Resolved]
  - Haemoptysis [Not Recovered/Not Resolved]
  - Influenza [Not Recovered/Not Resolved]
  - Finger deformity [Not Recovered/Not Resolved]

NARRATIVE: CASE EVENT DATE: 20200101
